FAERS Safety Report 8165574-6 (Version None)
Quarter: 2012Q1

REPORT INFORMATION
  Report Type: 
  Country: None (occurrence: None)
  Receive Date: 20120223
  Receipt Date: 20120223
  Transmission Date: 20120608
  Serious: No
  Sender: FDA-Public Use
  Company Number: None

PATIENT
  Age: 65 Year
  Sex: Female
  Weight: 65.7716 kg

DRUGS (1)
  1. ATORVASTATIN [Suspect]
     Indication: BLOOD CHOLESTEROL INCREASED
     Dosage: 1 TABLET EVERY DAY BY MOUTH
     Route: 048
     Dates: start: 20120107, end: 20120109

REACTIONS (3)
  - ARTHROPATHY [None]
  - POLLAKIURIA [None]
  - GAIT DISTURBANCE [None]
